FAERS Safety Report 19180922 (Version 7)
Quarter: 2021Q2

REPORT INFORMATION
  Report Type: Spontaneous
  Country: US (occurrence: US)
  Receive Date: 20210426
  Receipt Date: 20210521
  Transmission Date: 20210717
  Serious: Yes (Other)
  Sender: FDA-Public Use
  Company Number: US-CELGENEUS-USA-20210404478

PATIENT
  Age: 17 Year
  Sex: Male

DRUGS (2)
  1. VENETOCLAX. [Concomitant]
     Active Substance: VENETOCLAX
     Indication: ACUTE MYELOID LEUKAEMIA
     Route: 065
     Dates: start: 2020
  2. AZACITIDINE. [Suspect]
     Active Substance: AZACITIDINE
     Indication: ACUTE MYELOID LEUKAEMIA
     Route: 065
     Dates: start: 2020

REACTIONS (4)
  - Minimal residual disease [Unknown]
  - Secondary immunodeficiency [Unknown]
  - Full blood count decreased [Unknown]
  - Autoimmune neutropenia [Unknown]

NARRATIVE: CASE EVENT DATE: 202007
